FAERS Safety Report 24658803 (Version 1)
Quarter: 2024Q4

REPORT INFORMATION
  Report Type: Report from Study
  Country: FR (occurrence: FR)
  Receive Date: 20241125
  Receipt Date: 20241125
  Transmission Date: 20250115
  Serious: Yes (Death, Hospitalization)
  Sender: MYLAN
  Company Number: FR-SA-SAC20240605000244

PATIENT
  Age: 49 Year
  Sex: Female

DRUGS (28)
  1. DEXAMETHASONE [Suspect]
     Active Substance: DEXAMETHASONE
     Indication: Plasma cell myeloma refractory
     Dosage: 40 MILLIGRAM, QW
     Route: 065
     Dates: start: 20220307, end: 20220321
  2. ISATUXIMAB [Suspect]
     Active Substance: ISATUXIMAB
     Indication: Plasma cell myeloma refractory
     Dosage: 520 MILLIGRAM, QW
     Route: 042
     Dates: start: 20220307, end: 20220321
  3. ISATUXIMAB [Suspect]
     Active Substance: ISATUXIMAB
     Dosage: 1040 MILLIGRAM, QW (520 MG, BIW)
     Route: 042
     Dates: start: 20220523, end: 20220620
  4. ISATUXIMAB [Suspect]
     Active Substance: ISATUXIMAB
     Dosage: 1040 MILLIGRAM, QW (520 MG, BIW)
     Route: 042
     Dates: start: 20220621
  5. POMALIDOMIDE [Suspect]
     Active Substance: POMALIDOMIDE
     Indication: Plasma cell myeloma refractory
     Dosage: 4 MILLIGRAM, QD (4 MG DAILY DURING 21 DAYS, ONE WEEK BREAK)
     Route: 048
     Dates: start: 20220307, end: 20220312
  6. POMALIDOMIDE [Suspect]
     Active Substance: POMALIDOMIDE
     Dosage: 2 MILLIGRAM, QD (2 MG DAILY DURING 21 DAYS, ONE WEEK BREAK)
     Route: 048
     Dates: start: 20220523, end: 20220620
  7. POMALIDOMIDE [Suspect]
     Active Substance: POMALIDOMIDE
     Dosage: 2 MILLIGRAM, QD (2 MG DAILY DURING 21 DAYS, ONE WEEK BREAK)
     Route: 048
     Dates: start: 20220621
  8. VALACYCLOVIR HYDROCHLORIDE MONOHYDRATE [Concomitant]
     Active Substance: VALACYCLOVIR HYDROCHLORIDE MONOHYDRATE
     Indication: Prophylaxis
     Dosage: UNK
     Route: 065
     Dates: start: 20200723
  9. VALACYCLOVIR HYDROCHLORIDE MONOHYDRATE [Concomitant]
     Active Substance: VALACYCLOVIR HYDROCHLORIDE MONOHYDRATE
     Dosage: UNK
     Route: 065
     Dates: start: 20220430
  10. ATOVAQUONE [Concomitant]
     Active Substance: ATOVAQUONE
     Indication: Prophylaxis
     Dosage: UNK
     Route: 065
     Dates: start: 202008
  11. LYSINE ACETYLSALICYLATE [Concomitant]
     Active Substance: ASPIRIN DL-LYSINE
     Indication: Prophylaxis
     Dosage: UNK
     Route: 065
     Dates: start: 20200724
  12. CLODRONIC ACID [Concomitant]
     Active Substance: CLODRONIC ACID
     Indication: Bone pain
     Dosage: UNK
     Route: 065
     Dates: start: 202008
  13. CHOLECALCIFEROL [Concomitant]
     Active Substance: CHOLECALCIFEROL
     Indication: Bone pain
     Dosage: UNK
     Route: 065
     Dates: start: 202008
  14. ALPRAZOLAM [Concomitant]
     Active Substance: ALPRAZOLAM
     Indication: Anxiety
     Dosage: UNK
     Route: 065
     Dates: start: 2020
  15. PAROXETINE HYDROCHLORIDE [Concomitant]
     Active Substance: PAROXETINE HYDROCHLORIDE
     Indication: Anxiety
     Dosage: UNK
     Route: 065
     Dates: start: 20211103
  16. PANTOPRAZOLE [Concomitant]
     Active Substance: PANTOPRAZOLE
     Indication: Duodenal ulcer
     Dosage: UNK
     Route: 065
     Dates: start: 202204
  17. SODIUM CARBONATE [Concomitant]
     Active Substance: SODIUM CARBONATE
     Dosage: UNK
     Route: 065
     Dates: start: 202204
  18. ELUDRIL PERIO [Concomitant]
     Dosage: UNK
     Route: 065
     Dates: start: 202204
  19. NICARDIPINE HYDROCHLORIDE [Concomitant]
     Active Substance: NICARDIPINE HYDROCHLORIDE
     Dosage: UNK
     Route: 065
     Dates: start: 202204
  20. ERYTHROPOIETIN [Concomitant]
     Active Substance: ERYTHROPOIETIN
     Indication: Anaemia prophylaxis
     Dosage: UNK
     Route: 065
     Dates: start: 20220429
  21. MELATONIN [Concomitant]
     Active Substance: MELATONIN
     Indication: Anxiety
     Dosage: UNK
     Route: 065
     Dates: start: 20220429
  22. BECLOMETHASONE DIPROPIONATE [Concomitant]
     Active Substance: BECLOMETHASONE DIPROPIONATE
     Dosage: UNK
     Route: 065
     Dates: start: 20220527
  23. ALBUTEROL SULFATE [Concomitant]
     Active Substance: ALBUTEROL SULFATE
     Dosage: UNK
     Route: 065
     Dates: start: 20220527
  24. MORPHINE [Concomitant]
     Active Substance: MORPHINE
     Dosage: UNK
     Route: 065
     Dates: start: 20220527
  25. ACETAMINOPHEN [Concomitant]
     Active Substance: ACETAMINOPHEN
     Dosage: CYCLE (QCY)
     Route: 065
     Dates: start: 20220307, end: 20220704
  26. LEVOCETIRIZINE HYDROCHLORIDE [Concomitant]
     Active Substance: LEVOCETIRIZINE HYDROCHLORIDE
     Dosage: CYCLE (QCY)
     Route: 065
     Dates: start: 20220308, end: 20220704
  27. LANSOPRAZOLE [Concomitant]
     Active Substance: LANSOPRAZOLE
     Dosage: CYCLE (QCY)
     Route: 065
     Dates: start: 20220307, end: 20220704
  28. CIMETIDINE [Concomitant]
     Active Substance: CIMETIDINE
     Dosage: CYCLE (QCY)
     Route: 065
     Dates: start: 20220307, end: 20220704

REACTIONS (3)
  - Disease progression [Fatal]
  - General physical health deterioration [Recovered/Resolved with Sequelae]
  - Oral fungal infection [Not Recovered/Not Resolved]

NARRATIVE: CASE EVENT DATE: 20220718
